FAERS Safety Report 16628471 (Version 17)
Quarter: 2022Q3

REPORT INFORMATION
  Report Type: Spontaneous
  Country: CA (occurrence: CA)
  Receive Date: 20190725
  Receipt Date: 20220914
  Transmission Date: 20221027
  Serious: Yes (Hospitalization, Other)
  Sender: FDA-Public Use
  Company Number: CA-CELLTRION INC.-2019CA019466

PATIENT

DRUGS (56)
  1. INFLECTRA [Suspect]
     Active Substance: INFLIXIMAB-DYYB
     Indication: Ankylosing spondylitis
     Dosage: 350 MG OR 5 MG/KG 0, 2, 6 THEN EVERY 6 WEEKS
     Route: 042
     Dates: start: 20190306
  2. INFLECTRA [Suspect]
     Active Substance: INFLIXIMAB-DYYB
     Dosage: 350 MG OR 5 MG/KG 0, 2, 6 THEN EVERY 6 WEEKS
     Route: 042
     Dates: start: 20190321
  3. INFLECTRA [Suspect]
     Active Substance: INFLIXIMAB-DYYB
     Dosage: 350 MG OR 5 MG/KG 0, 2, 6 THEN EVERY 6 WEEKS
     Route: 042
     Dates: start: 20190418
  4. INFLECTRA [Suspect]
     Active Substance: INFLIXIMAB-DYYB
     Dosage: 350 MG OR 5 MG/KG 0, 2, 6 THEN EVERY 6 WEEKS
     Route: 042
     Dates: start: 20190530
  5. INFLECTRA [Suspect]
     Active Substance: INFLIXIMAB-DYYB
     Dosage: 350 MG OR 5 MG/KG 0, 2, 6 THEN EVERY 6 WEEKS
     Route: 042
     Dates: start: 20190711
  6. INFLECTRA [Suspect]
     Active Substance: INFLIXIMAB-DYYB
     Dosage: 350 MG OR 5 MG/KG 0, 2, 6 THEN EVERY 6 WEEKS
     Route: 042
     Dates: start: 20190822
  7. INFLECTRA [Suspect]
     Active Substance: INFLIXIMAB-DYYB
     Dosage: 350 MG OR 5 MG/KG 0, 2, 6 THEN EVERY 6 WEEKS
     Route: 042
     Dates: start: 20191003
  8. INFLECTRA [Suspect]
     Active Substance: INFLIXIMAB-DYYB
     Dosage: 350 MG OR 5 MG/KG 0, 2, 6 THEN EVERY 6 WEEKS
     Route: 042
     Dates: start: 20191114
  9. INFLECTRA [Suspect]
     Active Substance: INFLIXIMAB-DYYB
     Dosage: 350 MG OR 5 MG/KG 0, 2, 6 THEN EVERY 6 WEEKS
     Route: 042
     Dates: start: 20191224
  10. INFLECTRA [Suspect]
     Active Substance: INFLIXIMAB-DYYB
     Dosage: 350 MG OR 5 MG/KG 0, 2, 6 THEN EVERY 6 WEEKS
     Route: 042
     Dates: start: 20200226
  11. INFLECTRA [Suspect]
     Active Substance: INFLIXIMAB-DYYB
     Dosage: 350 MG OR 5 MG/KG 0, 2, 6 THEN EVERY 6 WEEKS
     Route: 042
     Dates: start: 20200407
  12. INFLECTRA [Suspect]
     Active Substance: INFLIXIMAB-DYYB
     Dosage: 350 MG OR 5 MG/KG 0, 2, 6 THEN EVERY 6 WEEKS
     Route: 042
     Dates: start: 20200520
  13. INFLECTRA [Suspect]
     Active Substance: INFLIXIMAB-DYYB
     Dosage: 350 MG OR 5 MG/KG 0, 2, 6 THEN EVERY 6 WEEKS
     Route: 042
     Dates: start: 20200812
  14. INFLECTRA [Suspect]
     Active Substance: INFLIXIMAB-DYYB
     Dosage: 350 MG OR 5 MG/KG 0, 2, 6 THEN EVERY 6 WEEKS
     Route: 042
     Dates: start: 20200923
  15. INFLECTRA [Suspect]
     Active Substance: INFLIXIMAB-DYYB
     Dosage: 350 MG OR 5 MG/KG 0, 2, 6 THEN EVERY 6 WEEKS
     Route: 042
     Dates: start: 20201103
  16. INFLECTRA [Suspect]
     Active Substance: INFLIXIMAB-DYYB
     Dosage: 350 MG OR 5 MG/KG 0, 2, 6 THEN EVERY 6 WEEKS
     Route: 042
     Dates: start: 20201103
  17. INFLECTRA [Suspect]
     Active Substance: INFLIXIMAB-DYYB
     Dosage: 350 MG OR 5 MG/KG 0, 2, 6 THEN EVERY 6 WEEKS
     Route: 042
     Dates: start: 20201215
  18. INFLECTRA [Suspect]
     Active Substance: INFLIXIMAB-DYYB
     Dosage: 350 MG OR 5 MG/KG 0, 2, 6 THEN EVERY 6 WEEKS
     Route: 042
     Dates: start: 20210309
  19. INFLECTRA [Suspect]
     Active Substance: INFLIXIMAB-DYYB
     Dosage: 350 MG OR 5 MG/KG 0, 2, 6 THEN EVERY 6 WEEKS
     Route: 042
     Dates: start: 20210421
  20. INFLECTRA [Suspect]
     Active Substance: INFLIXIMAB-DYYB
     Dosage: 350 MG OR 5 MG/KG 0, 2, 6 THEN EVERY 6 WEEKS
     Route: 042
     Dates: start: 20210604
  21. INFLECTRA [Suspect]
     Active Substance: INFLIXIMAB-DYYB
     Dosage: 350 MG OR 5 MG/KG 0, 2, 6 THEN EVERY 6 WEEKS
     Route: 042
     Dates: start: 20210712
  22. INFLECTRA [Suspect]
     Active Substance: INFLIXIMAB-DYYB
     Dosage: 350 MG OR 5 MG/KG 0, 2, 6 THEN EVERY 6 WEEKS
     Route: 042
     Dates: start: 20210826
  23. INFLECTRA [Suspect]
     Active Substance: INFLIXIMAB-DYYB
     Dosage: 350 MG OR 5 MG/KG 0, 2, 6 THEN EVERY 6 WEEKS
     Route: 042
     Dates: start: 20211007
  24. INFLECTRA [Suspect]
     Active Substance: INFLIXIMAB-DYYB
     Dosage: 350 MG OR 5 MG/KG 0, 2, 6 THEN EVERY 6 WEEKS
     Route: 042
     Dates: start: 20211118
  25. INFLECTRA [Suspect]
     Active Substance: INFLIXIMAB-DYYB
     Dosage: 350 MG OR 5 MG/KG 0, 2, 6 THEN EVERY 6 WEEKS
     Route: 042
     Dates: start: 20211229
  26. INFLECTRA [Suspect]
     Active Substance: INFLIXIMAB-DYYB
     Dosage: 350 MG OR 5 MG/KG 0, 2, 6 THEN EVERY 6 WEEKS
     Route: 042
     Dates: start: 20220314
  27. INFLECTRA [Suspect]
     Active Substance: INFLIXIMAB-DYYB
     Dosage: 350 MG OR 5 MG/KG 0, 2, 6 THEN EVERY 6 WEEKS
     Route: 042
     Dates: start: 20220425
  28. INFLECTRA [Suspect]
     Active Substance: INFLIXIMAB-DYYB
     Dosage: 350 MG OR 5 MG/KG 0, 2, 6 THEN EVERY 6 WEEKS
     Route: 042
     Dates: start: 20220607
  29. INFLECTRA [Suspect]
     Active Substance: INFLIXIMAB-DYYB
     Dosage: 350 MG OR 5 MG/KG 0, 2, 6 THEN EVERY 6 WEEKS
     Route: 042
     Dates: start: 20220718
  30. ACETAMINOPHEN [Concomitant]
     Active Substance: ACETAMINOPHEN
     Indication: Premedication
     Dosage: 650 MG, UNK
     Route: 048
     Dates: start: 20190306
  31. ACETAMINOPHEN [Concomitant]
     Active Substance: ACETAMINOPHEN
     Dosage: 650 MG, UNK
     Route: 048
     Dates: start: 20190321
  32. ACETAMINOPHEN [Concomitant]
     Active Substance: ACETAMINOPHEN
     Dosage: 650 MG, UNK
     Route: 048
     Dates: start: 20190530
  33. ACETAMINOPHEN [Concomitant]
     Active Substance: ACETAMINOPHEN
     Dosage: 650 MG, UNK
     Route: 048
     Dates: start: 20190711
  34. ACETAMINOPHEN [Concomitant]
     Active Substance: ACETAMINOPHEN
     Dosage: 325 MG, UNK
     Route: 048
     Dates: start: 20190822
  35. ACETAMINOPHEN [Concomitant]
     Active Substance: ACETAMINOPHEN
     Dosage: 650 MG, UNK
     Dates: start: 20191003
  36. ACETAMINOPHEN [Concomitant]
     Active Substance: ACETAMINOPHEN
     Dosage: 325 MG, UNK
     Route: 048
     Dates: start: 20191114
  37. ACETAMINOPHEN [Concomitant]
     Active Substance: ACETAMINOPHEN
     Dosage: 650 MG, UNK
     Dates: start: 20200407
  38. ACETAMINOPHEN [Concomitant]
     Active Substance: ACETAMINOPHEN
     Dosage: 650 MG, UNK
     Dates: start: 20200520
  39. ACETAMINOPHEN [Concomitant]
     Active Substance: ACETAMINOPHEN
     Dosage: 650 MG, UNK
     Dates: start: 20201103
  40. ACETAMINOPHEN [Concomitant]
     Active Substance: ACETAMINOPHEN
     Dosage: 650 MG
     Dates: start: 20201215
  41. ACETAMINOPHEN [Concomitant]
     Active Substance: ACETAMINOPHEN
     Dosage: 650 MG
     Dates: start: 20210421
  42. ACETAMINOPHEN [Concomitant]
     Active Substance: ACETAMINOPHEN
     Dosage: 650 MG
     Route: 048
     Dates: start: 20210712
  43. ACETAMINOPHEN [Concomitant]
     Active Substance: ACETAMINOPHEN
     Dosage: 1000 MG
     Route: 048
     Dates: start: 20211229
  44. ACETAMINOPHEN [Concomitant]
     Active Substance: ACETAMINOPHEN
     Dosage: 650 MG
     Route: 048
     Dates: start: 20220425, end: 20220425
  45. ATACAND [Concomitant]
     Active Substance: CANDESARTAN CILEXETIL
     Dosage: 16 MG, ONCE DAILY
  46. AMITRIPTYLINE [Concomitant]
     Active Substance: AMITRIPTYLINE
     Indication: Pain
     Dosage: UNK
     Dates: start: 201912
  47. DIPHENHYDRAMINE [Concomitant]
     Active Substance: DIPHENHYDRAMINE
     Indication: Premedication
     Dosage: 50 MG
     Route: 048
     Dates: start: 20220425, end: 20220425
  48. EFFEXOR [Concomitant]
     Active Substance: VENLAFAXINE HYDROCHLORIDE
     Dosage: 1 DF
     Route: 065
  49. EFFEXOR [Concomitant]
     Active Substance: VENLAFAXINE HYDROCHLORIDE
     Dosage: 150 MG, 1X/DAY
     Route: 065
  50. HYDROCORTISONE [Concomitant]
     Active Substance: HYDROCORTISONE
     Indication: Premedication
     Dosage: 100 MG
     Route: 042
     Dates: start: 20220425, end: 20220425
  51. INDERAL [Concomitant]
     Active Substance: PROPRANOLOL HYDROCHLORIDE
     Dosage: 120 MG, 1X/DAY
     Route: 065
  52. INDERAL [Concomitant]
     Active Substance: PROPRANOLOL HYDROCHLORIDE
     Dosage: UNK, HER DOSAGE OF INDERAL WAS INCREASED
     Dates: start: 20210604
  53. INDERAL [Concomitant]
     Active Substance: PROPRANOLOL HYDROCHLORIDE
     Dosage: 120 MG, 1X/DAY
     Route: 065
  54. PANTOPRAZOLE SODIUM [Concomitant]
     Active Substance: PANTOPRAZOLE SODIUM
     Dosage: 40 MG, 1X/DAY
     Route: 065
  55. PANTOPRAZOLE SODIUM [Concomitant]
     Active Substance: PANTOPRAZOLE SODIUM
     Dosage: 50 MG, 1X/DAY
  56. PANTOPRAZOLE SODIUM [Concomitant]
     Active Substance: PANTOPRAZOLE SODIUM
     Dosage: 40 MG, 1X/DAY
     Route: 065

REACTIONS (21)
  - Rectal haemorrhage [Recovered/Resolved]
  - Haemorrhoids [Recovered/Resolved]
  - Hypertension [Not Recovered/Not Resolved]
  - Ligament sprain [Not Recovered/Not Resolved]
  - Therapeutic response shortened [Unknown]
  - Off label use [Unknown]
  - Off label use [Unknown]
  - Intentional product use issue [Unknown]
  - Inappropriate schedule of product administration [Recovered/Resolved]
  - Blood pressure fluctuation [Unknown]
  - Migraine [Not Recovered/Not Resolved]
  - Nasal congestion [Not Recovered/Not Resolved]
  - Pain in extremity [Unknown]
  - Stress [Not Recovered/Not Resolved]
  - Tooth infection [Unknown]
  - Neck pain [Recovered/Resolved]
  - Musculoskeletal pain [Recovered/Resolved]
  - Back pain [Recovered/Resolved]
  - Weight increased [Unknown]
  - Heart rate decreased [Unknown]
  - Condition aggravated [Not Recovered/Not Resolved]

NARRATIVE: CASE EVENT DATE: 20190530
